FAERS Safety Report 25464900 (Version 1)
Quarter: 2025Q2

REPORT INFORMATION
  Report Type: Spontaneous
  Country: US (occurrence: US)
  Receive Date: 20250622
  Receipt Date: 20250622
  Transmission Date: 20250716
  Serious: No
  Sender: ELI LILLY AND COMPANY
  Company Number: US-ELI_LILLY_AND_COMPANY-US202506015595

PATIENT
  Age: 69 Year
  Sex: Female

DRUGS (3)
  1. LYUMJEV KWIKPEN [Suspect]
     Active Substance: INSULIN LISPRO
     Indication: Product used for unknown indication
     Route: 065
  2. LYUMJEV KWIKPEN [Suspect]
     Active Substance: INSULIN LISPRO
     Route: 065
  3. LYUMJEV KWIKPEN [Suspect]
     Active Substance: INSULIN LISPRO
     Route: 065

REACTIONS (4)
  - Incorrect dose administered [Unknown]
  - Accidental underdose [Unknown]
  - Blood glucose increased [Unknown]
  - Blood glucose decreased [Unknown]
